FAERS Safety Report 11990516 (Version 2)
Quarter: 2016Q1

REPORT INFORMATION
  Report Type: Spontaneous
  Country: US (occurrence: US)
  Receive Date: 20160202
  Receipt Date: 20160302
  Transmission Date: 20160526
  Serious: Yes (Hospitalization)
  Sender: FDA-Public Use
  Company Number: US-LUNDBECK-DKLU2009311

PATIENT
  Age: 5 Year
  Sex: Female

DRUGS (11)
  1. SENNA [Concomitant]
     Active Substance: SENNA LEAF\SENNOSIDES\SENNOSIDES A AND B
     Indication: CONSTIPATION
     Route: 048
  2. BISACODYL. [Concomitant]
     Active Substance: BISACODYL
     Indication: CONSTIPATION
     Route: 054
  3. SABRIL [Suspect]
     Active Substance: VIGABATRIN
     Indication: INFANTILE SPASMS
     Route: 048
     Dates: start: 20151229
  4. KEPPRA [Concomitant]
     Active Substance: LEVETIRACETAM
     Indication: SEIZURE
     Route: 048
  5. ALBUTEROL. [Concomitant]
     Active Substance: ALBUTEROL
     Indication: ASTHMA
     Route: 055
  6. SINGULAIR [Concomitant]
     Active Substance: MONTELUKAST SODIUM
     Indication: ASTHMA
     Route: 048
  7. LACTULOSE. [Concomitant]
     Active Substance: LACTULOSE
     Indication: CONSTIPATION
     Route: 048
  8. ATROVENT HFA [Concomitant]
     Active Substance: IPRATROPIUM BROMIDE
     Indication: ASTHMA
     Route: 055
  9. MIRALAX [Concomitant]
     Active Substance: POLYETHYLENE GLYCOL 3350
     Indication: CONSTIPATION
     Dosage: 1 CAPFUL
     Route: 048
  10. ONFI [Concomitant]
     Active Substance: CLOBAZAM
     Indication: SEIZURE
     Route: 048
  11. SABRIL [Suspect]
     Active Substance: VIGABATRIN
     Route: 048
     Dates: start: 20160125

REACTIONS (2)
  - Respiratory syncytial virus bronchiolitis [Recovered/Resolved]
  - Status epilepticus [Recovered/Resolved]

NARRATIVE: CASE EVENT DATE: 20160107
